FAERS Safety Report 5235394-0 (Version None)
Quarter: 2007Q1

REPORT INFORMATION
  Report Type: 
  Country: None (occurrence: None)
  Receive Date: 20070208
  Receipt Date: 20070208
  Transmission Date: 20070707
  Serious: Yes (Death)
  Sender: FDA-Public Use
  Company Number: None

PATIENT
  Age: 59 Year
  Sex: Male
  Weight: 72.6 kg

DRUGS (4)
  1. ARGATROBAN [Suspect]
     Indication: ANTICOAGULANT THERAPY
     Dosage: 1-2 MCG/KG/MIN IV
     Route: 042
     Dates: start: 20070126
  2. ARGATROBAN [Suspect]
     Indication: HEPARIN-INDUCED THROMBOCYTOPENIA
     Dosage: 1-2 MCG/KG/MIN IV
     Route: 042
     Dates: start: 20070126
  3. XIGRIS [Suspect]
     Indication: SEPSIS
     Dosage: 24 MCG/KG/HR IV
     Route: 042
     Dates: start: 20070126
  4. XIGRIS [Suspect]
     Indication: SYSTEMIC INFLAMMATORY RESPONSE SYNDROME
     Dosage: 24 MCG/KG/HR IV
     Route: 042
     Dates: start: 20070126

REACTIONS (3)
  - ACTIVATED PARTIAL THROMBOPLASTIN TIME PROLONGED [None]
  - CARDIO-RESPIRATORY ARREST [None]
  - HAEMORRHAGE [None]
